FAERS Safety Report 21435967 (Version 2)
Quarter: 2022Q4

REPORT INFORMATION
  Report Type: Spontaneous
  Country: IT (occurrence: None)
  Receive Date: 20221010
  Receipt Date: 20221013
  Transmission Date: 20230113
  Serious: Yes (Other)
  Sender: FDA-Public Use
  Company Number: IT-ROCHE-3193776

PATIENT
  Age: 33 Year
  Sex: Male

DRUGS (5)
  1. ERIVEDGE [Suspect]
     Active Substance: VISMODEGIB
     Indication: Medulloblastoma
     Route: 065
     Dates: start: 202111, end: 202204
  2. BEVACIZUMAB [Suspect]
     Active Substance: BEVACIZUMAB
     Indication: Medulloblastoma
     Route: 065
  3. CISPLATIN [Concomitant]
     Active Substance: CISPLATIN
  4. LOMUSTINE [Concomitant]
     Active Substance: LOMUSTINE
  5. VINCRISTINE [Concomitant]
     Active Substance: VINCRISTINE

REACTIONS (4)
  - Medulloblastoma [Unknown]
  - Spinal cord neoplasm [Unknown]
  - Medulloblastoma recurrent [Unknown]
  - Off label use [Unknown]

NARRATIVE: CASE EVENT DATE: 20211101
